FAERS Safety Report 5879755-5 (Version None)
Quarter: 2008Q3

REPORT INFORMATION
  Report Type: 
  Country: None (occurrence: None)
  Receive Date: 20080911
  Receipt Date: 20080911
  Transmission Date: 20090109
  Serious: Yes (Life-Threatening, Hospitalization, Disabling, Congenital Anomaly, Other)
  Sender: FDA-Public Use
  Company Number: None

PATIENT
  Age: 27 Year
  Sex: Female
  Weight: 99.7913 kg

DRUGS (1)
  1. ADVAIR DISKUS 100/50 [Suspect]
     Dosage: 100/50 2 TIMES A DAY
     Dates: start: 20040101, end: 20080901

REACTIONS (14)
  - ABORTION SPONTANEOUS [None]
  - ASTHMA [None]
  - BRONCHITIS [None]
  - DRUG DEPENDENCE [None]
  - DRUG EXPOSURE DURING PREGNANCY [None]
  - HEART RATE ABNORMAL [None]
  - ILL-DEFINED DISORDER [None]
  - IMPAIRED WORK ABILITY [None]
  - MATERNAL DRUGS AFFECTING FOETUS [None]
  - MULTIPLE ALLERGIES [None]
  - PNEUMONIA [None]
  - POISONING [None]
  - PREGNANCY [None]
  - TACHYCARDIA [None]
